FAERS Safety Report 7599672-2 (Version None)
Quarter: 2011Q3

REPORT INFORMATION
  Report Type: 
  Country: None (occurrence: None)
  Receive Date: 20110711
  Receipt Date: 20110627
  Transmission Date: 20111222
  Serious: Yes (Disabling)
  Sender: FDA-Public Use
  Company Number: GB-ELI_LILLY_AND_COMPANY-GB201106007561

PATIENT
  Age: 54 Year
  Sex: Male

DRUGS (5)
  1. OLANZAPINE [Suspect]
     Dosage: 20 MG, UNK
     Route: 048
  2. MIRTAZAPINE [Concomitant]
     Indication: DEPRESSION
     Dosage: 45 MG, UNK
     Route: 048
  3. PREGABALIN [Concomitant]
     Indication: ANXIETY
     Dosage: 250 MG, UNK
     Route: 048
  4. VENLAFAXINE [Concomitant]
     Indication: DEPRESSION
     Dosage: 225 MG, UNK
  5. OLANZAPINE [Suspect]
     Indication: DEPRESSED MOOD
     Dosage: 20 MG, UNK
     Route: 048
     Dates: end: 20101101

REACTIONS (4)
  - DYSTHYMIC DISORDER [None]
  - DRUG WITHDRAWAL SYNDROME [None]
  - OFF LABEL USE [None]
  - INSOMNIA [None]
